FAERS Safety Report 5638454-5 (Version None)
Quarter: 2008Q1

REPORT INFORMATION
  Report Type: 
  Country: None (occurrence: None)
  Receive Date: 20080226
  Receipt Date: 20080211
  Transmission Date: 20080703
  Serious: Yes (Hospitalization)
  Sender: FDA-Public Use
  Company Number: FR-GENENTECH-239005

PATIENT
  Sex: Male
  Weight: 90 kg

DRUGS (6)
  1. BEVACIZUMAB [Suspect]
     Indication: COLON CANCER
     Dosage: 450 MG, Q2W
     Route: 042
     Dates: start: 20070226
  2. OXALIPLATIN [Suspect]
     Indication: COLON CANCER
     Dosage: 170 MG, Q2W
     Route: 042
     Dates: start: 20070226
  3. LEUCOVORIN CALCIUM [Suspect]
     Indication: COLON CANCER
     Dosage: 400 MG, Q2W
     Route: 042
     Dates: start: 20070226
  4. FLUOROURACIL [Suspect]
     Indication: COLON CANCER
     Dosage: 800 MG, Q2W
     Route: 040
     Dates: start: 20070226
  5. FLUOROURACIL [Suspect]
     Dosage: 1200 MG, Q2W
     Route: 042
     Dates: start: 20070226
  6. ZESTORETIC [Concomitant]
     Indication: DRUG USE FOR UNKNOWN INDICATION

REACTIONS (2)
  - NEUTROPENIA [None]
  - PYREXIA [None]
